FAERS Safety Report 13045838 (Version 3)
Quarter: 2017Q1

REPORT INFORMATION
  Report Type: Report from Study
  Country: FR (occurrence: FR)
  Receive Date: 20161220
  Receipt Date: 20170215
  Transmission Date: 20170428
  Serious: Yes (Other)
  Sender: FDA-Public Use
  Company Number: FR-CELGENEUS-FRA-2016121902

PATIENT
  Age: 73 Year
  Sex: Female
  Weight: 68 kg

DRUGS (8)
  1. BACTRIM [Concomitant]
     Active Substance: SULFAMETHOXAZOLE\TRIMETHOPRIM
     Indication: PROPHYLAXIS
     Dosage: 800MG
     Route: 048
  2. PREVISCAN [Concomitant]
     Active Substance: FLUINDIONE
     Indication: PROPHYLAXIS
     Dosage: 20MG
     Route: 048
  3. MOPRALPRO [Concomitant]
     Active Substance: OMEPRAZOLE
     Indication: PROPHYLAXIS
     Dosage: 20MG
     Route: 048
  4. ZELTREX [Concomitant]
     Active Substance: VALACYCLOVIR HYDROCHLORIDE
     Indication: PROPHYLAXIS
     Dosage: 500MG
     Route: 048
  5. OXAPLATIN [Concomitant]
     Active Substance: OXALIPLATIN
     Indication: GASTROINTESTINAL OBSTRUCTION
     Route: 065
  6. CLAMOXYL [Concomitant]
     Active Substance: AMOXICILLIN\CLAVULANIC ACID
     Indication: PROPHYLAXIS
     Dosage: 1GM
     Route: 048
  7. CC-5013 [Suspect]
     Active Substance: LENALIDOMIDE
     Indication: PLASMA CELL MYELOMA
     Dosage: 10 MG
     Route: 048
     Dates: start: 20140725, end: 20160814
  8. CC-5013 [Suspect]
     Active Substance: LENALIDOMIDE
     Dosage: 10 MG
     Route: 048
     Dates: start: 20161115

REACTIONS (2)
  - Gastrointestinal obstruction [Recovered/Resolved]
  - Adenocarcinoma of colon [Not Recovered/Not Resolved]

NARRATIVE: CASE EVENT DATE: 20161203
